FAERS Safety Report 5368908-0 (Version None)
Quarter: 2007Q2

REPORT INFORMATION
  Report Type: 
  Country: None (occurrence: None)
  Receive Date: 20070625
  Receipt Date: 20061030
  Transmission Date: 20071010
  Serious: No
  Sender: FDA-Public Use
  Company Number: US-ASTRAZENECA-2006UW20759

PATIENT
  Age: 36 Year
  Sex: Female
  Weight: 66.7 kg

DRUGS (6)
  1. CRESTOR [Suspect]
     Indication: HYPERCHOLESTEROLAEMIA
     Route: 048
  2. ZETIA [Concomitant]
  3. SINGULAIR [Concomitant]
  4. M.V.I. [Concomitant]
  5. ASCORBIC ACID [Concomitant]
  6. ALLEGRA [Concomitant]

REACTIONS (1)
  - ALOPECIA [None]
